FAERS Safety Report 24033377 (Version 1)
Quarter: 2024Q3

REPORT INFORMATION
  Report Type: Spontaneous
  Country: US (occurrence: US)
  Receive Date: 20240701
  Receipt Date: 20240701
  Transmission Date: 20241016
  Serious: No
  Sender: UCB
  Company Number: US-UCBSA-2023028785

PATIENT
  Age: 39 Year
  Sex: Female

DRUGS (10)
  1. MIDAZOLAM [Suspect]
     Active Substance: MIDAZOLAM
     Indication: Sedation
     Dosage: UNK
  2. MIDAZOLAM [Suspect]
     Active Substance: MIDAZOLAM
     Indication: Product use in unapproved indication
  3. AMIODARONE [Concomitant]
     Active Substance: AMIODARONE
     Indication: Product used for unknown indication
     Dosage: DRIP
  4. MAGNESIUM [Concomitant]
     Active Substance: MAGNESIUM
     Indication: Product used for unknown indication
     Dosage: DRIP
  5. LIDOCAINE [Concomitant]
     Active Substance: LIDOCAINE
     Indication: Product used for unknown indication
     Dosage: DRIP
  6. DEXMEDETOMIDINE [Concomitant]
     Active Substance: DEXMEDETOMIDINE
     Indication: Sedation
     Dosage: UNK
  7. ISOPROTERENOL [Concomitant]
     Active Substance: ISOPROTERENOL
     Indication: Sedation
     Dosage: UNK
  8. LEVOTHYROXINE [Concomitant]
     Active Substance: LEVOTHYROXINE\LEVOTHYROXINE SODIUM
     Indication: Product used for unknown indication
     Dosage: UNK
     Route: 042
  9. QUINIDINE [Concomitant]
     Active Substance: QUINIDINE
     Indication: Ventricular extrasystoles
     Dosage: UNK
  10. QUINIDINE [Concomitant]
     Active Substance: QUINIDINE
     Indication: Ventricular tachycardia

REACTIONS (1)
  - Drug ineffective for unapproved indication [Unknown]
